FAERS Safety Report 6021068-5 (Version None)
Quarter: 2008Q4

REPORT INFORMATION
  Report Type: 
  Country: None (occurrence: None)
  Receive Date: 20081229
  Receipt Date: 20081216
  Transmission Date: 20090506
  Serious: Yes (Other)
  Sender: FDA-Public Use
  Company Number: US-PFIZER INC-2008100967

PATIENT
  Age: 55 Year
  Sex: Male

DRUGS (2)
  1. DILANTIN [Suspect]
     Indication: CONVULSION
     Dosage: UNK
     Dates: start: 19940501
  2. DURAGESIC-100 [Suspect]

REACTIONS (2)
  - NEUROPATHY PERIPHERAL [None]
  - UNEVALUABLE EVENT [None]
